FAERS Safety Report 5418445-X (Version None)
Quarter: 2007Q3

REPORT INFORMATION
  Report Type: 
  Country: None (occurrence: None)
  Receive Date: 20070718
  Receipt Date: 20070515
  Transmission Date: 20080115
  Serious: Yes (Hospitalization, Other)
  Sender: FDA-Public Use
  Company Number: 2006118818

PATIENT
  Sex: Male

DRUGS (3)
  1. CELEBREX [Suspect]
     Indication: MUSCULOSKELETAL PAIN
     Dosage: 200 MG (200 MG, 1 IN 1 D)
     Dates: start: 20010608
  2. BEXTRA [Suspect]
     Indication: MUSCULOSKELETAL PAIN
     Dosage: 10 MG (10 MG, 1 IN 1 D)
     Dates: start: 20020607
  3. VIOXX [Suspect]
     Dates: start: 20000901

REACTIONS (4)
  - ANXIETY [None]
  - CARDIAC ARREST [None]
  - DEPRESSION [None]
  - MYOCARDIAL INFARCTION [None]
